FAERS Safety Report 4865493-4 (Version None)
Quarter: 2005Q4

REPORT INFORMATION
  Report Type: 
  Country: None (occurrence: None)
  Receive Date: 20051223
  Receipt Date: 20050926
  Transmission Date: 20060501
  Serious: Yes (Hospitalization)
  Sender: FDA-Public Use
  Company Number: BR-ROCHE-419630

PATIENT
  Age: 45 Year
  Sex: Female

DRUGS (3)
  1. RIVOTRIL [Suspect]
     Indication: INSOMNIA
     Route: 048
     Dates: start: 20040615, end: 20051215
  2. RIVOTRIL [Suspect]
     Route: 048
     Dates: start: 20050915, end: 20050915
  3. UNSPECIFIED DRUGS [Concomitant]
     Indication: INSOMNIA
     Route: 048
     Dates: start: 20051215

REACTIONS (11)
  - ABDOMINAL PAIN UPPER [None]
  - AGGRESSION [None]
  - DERMATITIS BULLOUS [None]
  - DRUG INEFFECTIVE [None]
  - HEADACHE [None]
  - MEDICATION ERROR [None]
  - MOOD ALTERED [None]
  - NAUSEA [None]
  - TOOTHACHE [None]
  - VOMITING [None]
  - WOUND [None]
